FAERS Safety Report 16225087 (Version 2)
Quarter: 2019Q2

REPORT INFORMATION
  Report Type: Spontaneous
  Country: SE (occurrence: SE)
  Receive Date: 20190422
  Receipt Date: 20190501
  Transmission Date: 20190711
  Serious: Yes (Hospitalization)
  Sender: FDA-Public Use
  Company Number: SE-MYLANLABS-2019M1037214

PATIENT
  Age: 80 Year
  Sex: Male

DRUGS (5)
  1. TROMBYL [Concomitant]
     Active Substance: ASPIRIN
     Indication: PRODUCT USED FOR UNKNOWN INDICATION
     Dosage: UNK UNK,UNK
     Route: 065
  2. SIMVASTATIN. [Concomitant]
     Active Substance: SIMVASTATIN
     Indication: PRODUCT USED FOR UNKNOWN INDICATION
     Dosage: UNK UNK,UNK
     Route: 065
  3. TRIATEC                            /00885601/ [Concomitant]
     Active Substance: RAMIPRIL
     Indication: URINARY TRACT DISORDER
     Dosage: UNK UNK,UNK
     Route: 048
     Dates: end: 20100124
  4. PROPRANOLOL [Concomitant]
     Active Substance: PROPRANOLOL HYDROCHLORIDE
     Indication: PRODUCT USED FOR UNKNOWN INDICATION
     Dosage: UNK UNK,UNK
     Route: 065
  5. ALFUZOSIN [Suspect]
     Active Substance: ALFUZOSIN
     Indication: URINARY TRACT DISORDER
     Dosage: 10 MG,QD
     Route: 048
     Dates: end: 20100124

REACTIONS (4)
  - Hypotension [Unknown]
  - Chest pain [Unknown]
  - Fall [Unknown]
  - Pain in extremity [Unknown]

NARRATIVE: CASE EVENT DATE: 20100123
